FAERS Safety Report 6447488-2 (Version None)
Quarter: 2009Q4

REPORT INFORMATION
  Report Type: 
  Country: None (occurrence: None)
  Receive Date: 20091119
  Receipt Date: 20090302
  Transmission Date: 20100525
  Serious: Yes (Other)
  Sender: FDA-Public Use
  Company Number: US-AMGEN-QUU308393

PATIENT
  Sex: Female
  Weight: 66.3 kg

DRUGS (2)
  1. ENBREL [Suspect]
     Indication: RHEUMATOID ARTHRITIS
     Route: 058
     Dates: start: 20060111, end: 20081104
  2. METHOTREXATE [Concomitant]
     Dates: start: 20000101

REACTIONS (2)
  - MALIGNANT MELANOMA [None]
  - RHEUMATOID ARTHRITIS [None]
